FAERS Safety Report 15659721 (Version 1)
Quarter: 2018Q4

REPORT INFORMATION
  Report Type: Spontaneous
  Country: FR (occurrence: FR)
  Receive Date: 20181127
  Receipt Date: 20181127
  Transmission Date: 20190205
  Serious: Yes (Life-Threatening, Hospitalization)
  Sender: FDA-Public Use
  Company Number: FR-ZYDUS-030663

PATIENT
  Age: 65 Year
  Sex: Female
  Weight: 89.1 kg

DRUGS (11)
  1. ALLOPURINOL. [Suspect]
     Active Substance: ALLOPURINOL
     Indication: GOUT
     Route: 048
     Dates: start: 20180830, end: 20180904
  2. BROMAZEPAM [Concomitant]
     Active Substance: BROMAZEPAM
     Indication: PRODUCT USED FOR UNKNOWN INDICATION
  3. COLCHICINE. [Suspect]
     Active Substance: COLCHICINE
     Indication: GOUT
     Route: 048
     Dates: start: 20180426, end: 20180831
  4. IRBESARTAN. [Concomitant]
     Active Substance: IRBESARTAN
     Indication: PRODUCT USED FOR UNKNOWN INDICATION
  5. NEBIVOLOL. [Concomitant]
     Active Substance: NEBIVOLOL
     Indication: PRODUCT USED FOR UNKNOWN INDICATION
  6. PARACETAMOL [Concomitant]
     Active Substance: ACETAMINOPHEN
     Indication: PRODUCT USED FOR UNKNOWN INDICATION
  7. ASCORBIC ACID/FERROUS SULFATE [Concomitant]
     Indication: PRODUCT USED FOR UNKNOWN INDICATION
  8. FUROSEMIDE. [Concomitant]
     Active Substance: FUROSEMIDE
     Indication: PRODUCT USED FOR UNKNOWN INDICATION
  9. SIMVASTATIN. [Concomitant]
     Active Substance: SIMVASTATIN
     Indication: PRODUCT USED FOR UNKNOWN INDICATION
  10. ESOMEPRAZOLE. [Concomitant]
     Active Substance: ESOMEPRAZOLE MAGNESIUM
     Indication: PRODUCT USED FOR UNKNOWN INDICATION
  11. CALCIFEDIOL [Concomitant]
     Active Substance: CALCIFEDIOL
     Indication: PRODUCT USED FOR UNKNOWN INDICATION

REACTIONS (5)
  - Rash morbilliform [Recovered/Resolved]
  - Hepatocellular injury [Recovered/Resolved]
  - Acute kidney injury [Recovering/Resolving]
  - Hypersensitivity [Recovered/Resolved]
  - Eosinophilia [Not Recovered/Not Resolved]

NARRATIVE: CASE EVENT DATE: 20180831
